FAERS Safety Report 6877776-7 (Version None)
Quarter: 2010Q3

REPORT INFORMATION
  Report Type: 
  Country: None (occurrence: None)
  Receive Date: 20100727
  Receipt Date: 20090721
  Transmission Date: 20110219
  Serious: No
  Sender: FDA-Public Use
  Company Number: US-ABBOTT-09P-163-0586592-00

PATIENT
  Age: 64 Year
  Sex: Female

DRUGS (5)
  1. SYNTHROID [Suspect]
     Indication: BLOOD THYROID STIMULATING HORMONE DECREASED
     Dates: start: 20090601, end: 20090601
  2. VITAMIN B-12 [Concomitant]
     Indication: ANAEMIA
     Dosage: UNKNOWN
  3. LEXAPRO [Concomitant]
     Indication: STRESS
     Dates: start: 20080101
  4. XANAX [Concomitant]
     Indication: STRESS
     Dosage: LOW DOSE
     Dates: start: 20080101
  5. XANAX [Concomitant]
     Indication: TREMOR

REACTIONS (1)
  - TREMOR [None]
